FAERS Safety Report 21465961 (Version 3)
Quarter: 2022Q4

REPORT INFORMATION
  Report Type: Report from Study
  Country: US (occurrence: US)
  Receive Date: 20221017
  Receipt Date: 20221216
  Transmission Date: 20230113
  Serious: Yes (Hospitalization, Other)
  Sender: FDA-Public Use
  Company Number: US-ARGENX-2022-ARGX-US002092

PATIENT

DRUGS (1)
  1. VYVGART [Suspect]
     Active Substance: EFGARTIGIMOD ALFA-FCAB
     Indication: Myasthenia gravis

REACTIONS (6)
  - Dizziness [Unknown]
  - Presyncope [Unknown]
  - Dehydration [Recovered/Resolved]
  - Respiratory syncytial virus infection [Recovering/Resolving]
  - Respiratory disorder [Recovering/Resolving]
  - Lower respiratory tract infection [Recovering/Resolving]
